FAERS Safety Report 22610498 (Version 1)
Quarter: 2023Q2

REPORT INFORMATION
  Report Type: Spontaneous
  Country: SE (occurrence: SE)
  Receive Date: 20230616
  Receipt Date: 20230616
  Transmission Date: 20230722
  Serious: Yes (Hospitalization)
  Sender: FDA-Public Use
  Company Number: None

PATIENT
  Age: 61 Year
  Sex: Female

DRUGS (5)
  1. LOSARTAN [Suspect]
     Active Substance: LOSARTAN
     Indication: Hypertension
     Dosage: FOR ACTIVE INGREDIENT LOSARTAN THE STRENGTH IS 11.47 MILLIGRAM, FOR ACTIVE INGREDIENT LOSARTANKALIUM
     Route: 065
     Dates: start: 20230324, end: 20230508
  2. ACETAMINOPHEN [Concomitant]
     Active Substance: ACETAMINOPHEN
     Indication: Product used for unknown indication
     Dosage: 1-2 X 3
     Route: 065
     Dates: start: 20220316
  3. PLAQUENIL [Concomitant]
     Active Substance: HYDROXYCHLOROQUINE SULFATE
     Indication: Product used for unknown indication
     Dosage: FOR ACTIVE INGREDIENT HYDROXYCHLOROQUINE THE STRENGTH IS 155 MILLIGRAM, FOR ACTIVE INGREDIENT HYDROX
     Route: 065
     Dates: start: 20130906
  4. ORUDIS [Concomitant]
     Active Substance: KETOPROFEN
     Indication: Product used for unknown indication
     Route: 065
     Dates: start: 20151002
  5. OMEPRAZOLE [Concomitant]
     Active Substance: OMEPRAZOLE
     Indication: Product used for unknown indication
     Route: 065
     Dates: start: 20160126

REACTIONS (1)
  - Vision blurred [Recovered/Resolved]

NARRATIVE: CASE EVENT DATE: 20230409
